FAERS Safety Report 13687608 (Version 3)
Quarter: 2018Q1

REPORT INFORMATION
  Report Type: Spontaneous
  Country: US (occurrence: US)
  Receive Date: 20170624
  Receipt Date: 20180326
  Transmission Date: 20180508
  Serious: Yes (Hospitalization)
  Sender: FDA-Public Use
  Company Number: PHEH2017US018481

PATIENT
  Sex: Female

DRUGS (3)
  1. LENVIMA [Suspect]
     Active Substance: LENVATINIB
     Dosage: 18 MG, QD (ONCE DAILY)
     Route: 048
     Dates: start: 20170509
  2. AFINITOR [Suspect]
     Active Substance: EVEROLIMUS
     Indication: RENAL CELL CARCINOMA
     Dosage: 5 MG, QD (ONCE DAILY)
     Route: 065
     Dates: start: 20170425
  3. LENVIMA [Suspect]
     Active Substance: LENVATINIB
     Indication: RENAL CELL CARCINOMA
     Dosage: 18 MG, QD (ONCE DAILY)
     Route: 065
     Dates: start: 20170425

REACTIONS (38)
  - Hyperhidrosis [Unknown]
  - Neck pain [Unknown]
  - Radiation necrosis [Unknown]
  - Anxiety [Unknown]
  - Rhinorrhoea [Unknown]
  - Constipation [Unknown]
  - Stomatitis [Unknown]
  - Metastases to lung [Unknown]
  - Myalgia [Unknown]
  - Deep vein thrombosis [Unknown]
  - Back pain [Unknown]
  - Diplopia [Unknown]
  - Eye disorder [Unknown]
  - Hypothyroidism [Unknown]
  - Asthenia [Unknown]
  - Arthralgia [Unknown]
  - Diverticulitis [Recovering/Resolving]
  - Nervousness [Unknown]
  - Headache [Unknown]
  - Sleep disorder [Unknown]
  - Metastases to adrenals [Unknown]
  - Pain [Unknown]
  - Blood pressure increased [Not Recovered/Not Resolved]
  - Upper-airway cough syndrome [Unknown]
  - Hypoaesthesia oral [Unknown]
  - Hypoaesthesia [Unknown]
  - Metastasis [Unknown]
  - Vomiting [Unknown]
  - Chest pain [Unknown]
  - Metastases to bone [Unknown]
  - Eyelid ptosis [Unknown]
  - Occipital neuralgia [Unknown]
  - Fatigue [Not Recovered/Not Resolved]
  - Joint swelling [Unknown]
  - Hypoglycaemia [Unknown]
  - Chills [Unknown]
  - Nausea [Unknown]
  - Rash [Not Recovered/Not Resolved]
